FAERS Safety Report 9049625 (Version 2)
Quarter: 2013Q1

REPORT INFORMATION
  Report Type: Spontaneous
  Country: US (occurrence: US)
  Receive Date: 20130205
  Receipt Date: 20130315
  Transmission Date: 20140127
  Serious: Yes (Other)
  Sender: FDA-Public Use
  Company Number: US-PFIZER INC-2013042695

PATIENT
  Age: 71 Year
  Sex: Female
  Weight: 68 kg

DRUGS (2)
  1. PREMARIN [Suspect]
     Dosage: 1 G, WEEKLY
     Route: 067
     Dates: start: 201203, end: 201212
  2. ARMOUR THYROID [Concomitant]
     Indication: HYPOTHYROIDISM
     Dosage: 60 MG, 1X/DAY

REACTIONS (4)
  - Bladder disorder [Unknown]
  - Alopecia [Recovered/Resolved]
  - Arthralgia [Not Recovered/Not Resolved]
  - Myalgia [Not Recovered/Not Resolved]
